FAERS Safety Report 5096939-7 (Version None)
Quarter: 2006Q3

REPORT INFORMATION
  Report Type: 
  Country: None (occurrence: None)
  Receive Date: 20060906
  Receipt Date: 20060901
  Transmission Date: 20061208
  Serious: Yes (Life-Threatening)
  Sender: FDA-Public Use
  Company Number: US-JNJFOC-20060802443

PATIENT
  Sex: Female
  Weight: 56.7 kg

DRUGS (19)
  1. REMICADE [Suspect]
     Route: 042
  2. REMICADE [Suspect]
     Route: 042
  3. REMICADE [Suspect]
     Dosage: 4 INFUSIONS ON UNKNOWN DATES
     Route: 042
  4. REMICADE [Suspect]
     Indication: RHEUMATOID ARTHRITIS
     Route: 042
  5. PRILOSEC [Concomitant]
  6. FOLIC ACID [Concomitant]
  7. CALCIUM AND VITAMIN D [Concomitant]
  8. MACROBID [Concomitant]
  9. METHOTREXATE [Concomitant]
  10. ESTROGENS SOL/INJ [Concomitant]
     Route: 067
  11. ASPIRIN [Concomitant]
  12. CLARITIN [Concomitant]
     Indication: PREMEDICATION
  13. EXTRA STRENGTH TYLENOL [Concomitant]
     Indication: PREMEDICATION
  14. COZAAR [Concomitant]
  15. VICODIN [Concomitant]
  16. MULTI-VITAMIN [Concomitant]
  17. DITROPAN [Concomitant]
  18. ELAVIL [Concomitant]
  19. ALEVE (CAPLET) [Concomitant]

REACTIONS (1)
  - CARCINOID TUMOUR OF THE STOMACH [None]
